FAERS Safety Report 13849378 (Version 1)
Quarter: 2017Q3

REPORT INFORMATION
  Report Type: Report from Study
  Country: GB (occurrence: GB)
  Receive Date: 20170809
  Receipt Date: 20170809
  Transmission Date: 20171127
  Serious: Yes (Other)
  Sender: FDA-Public Use
  Company Number: GB-SUN PHARMACEUTICAL INDUSTRIES LTD-2017RR-147080

PATIENT
  Sex: Male

DRUGS (11)
  1. LEVETIRACETAM. [Suspect]
     Active Substance: LEVETIRACETAM
     Indication: MYOCLONIC EPILEPSY
     Route: 065
  2. CARBAMAZEPINE. [Suspect]
     Active Substance: CARBAMAZEPINE
     Indication: MYOCLONIC EPILEPSY
     Route: 065
  3. CLOBAZAM [Suspect]
     Active Substance: CLOBAZAM
     Indication: MYOCLONIC EPILEPSY
     Route: 065
  4. BIOTIN [Suspect]
     Active Substance: BIOTIN
     Indication: MYOCLONIC EPILEPSY
     Route: 065
  5. RIBOFLAVIN [Suspect]
     Active Substance: RIBOFLAVIN
     Indication: MYOCLONIC EPILEPSY
     Route: 065
  6. VALPROIC ACID. [Suspect]
     Active Substance: VALPROIC ACID
     Indication: MYOCLONIC EPILEPSY
     Route: 065
  7. PIRACETAM [Suspect]
     Active Substance: PIRACETAM
     Indication: MYOCLONIC EPILEPSY
     Route: 065
  8. LEVODOPA [Suspect]
     Active Substance: LEVODOPA
     Indication: MYOCLONIC EPILEPSY
     Route: 065
  9. COENZYME Q10 [Suspect]
     Active Substance: UBIDECARENONE
     Indication: MYOCLONIC EPILEPSY
     Route: 065
  10. NITRAZEPAM [Suspect]
     Active Substance: NITRAZEPAM
     Indication: MYOCLONIC EPILEPSY
     Route: 065
  11. THIAMINE. [Suspect]
     Active Substance: THIAMINE
     Indication: MYOCLONIC EPILEPSY
     Route: 065

REACTIONS (1)
  - Drug effect incomplete [Unknown]
